FAERS Safety Report 10372959 (Version 2)
Quarter: 2014Q3

REPORT INFORMATION
  Report Type: Spontaneous
  Country: US (occurrence: US)
  Receive Date: 20140808
  Receipt Date: 20140808
  Transmission Date: 20150326
  Serious: Yes (Hospitalization, Other)
  Sender: FDA-Public Use
  Company Number: US-BRISTOL-MYERS SQUIBB COMPANY-19850593

PATIENT
  Age: 55 Year
  Sex: Female

DRUGS (11)
  1. VITAMIN B6 [Concomitant]
     Active Substance: PYRIDOXINE HYDROCHLORIDE
     Route: 048
  2. SIMVASTATIN. [Concomitant]
     Active Substance: SIMVASTATIN
  3. DONEPEZIL [Concomitant]
     Active Substance: DONEPEZIL
     Dosage: TABS
     Route: 048
  4. NITROSTAT [Concomitant]
     Active Substance: NITROGLYCERIN
  5. MAGNESIUM OXIDE. [Concomitant]
     Active Substance: MAGNESIUM OXIDE
     Route: 048
  6. FOLIC ACID. [Concomitant]
     Active Substance: FOLIC ACID
     Route: 048
  7. ASPIRIN. [Concomitant]
     Active Substance: ASPIRIN
     Route: 048
  8. HUMALOG [Concomitant]
     Active Substance: INSULIN LISPRO
     Dosage: HUMALOG 100 UNIT/ML SOLN (INSULIN LISPRO (HUMAN)) 16/27/31 UNITS EACH DAILY
  9. LANTUS [Concomitant]
     Active Substance: INSULIN GLARGINE
     Dosage: LANTUS 100 UNITIML SQLN (INSULIN GLARGINE) 85 UNITS DAILY
  10. SPRYCEL [Suspect]
     Active Substance: DASATINIB
     Indication: CHRONIC MYELOID LEUKAEMIA
     Dates: start: 20120202, end: 20131126
  11. VITAMIN B12 [Concomitant]
     Active Substance: CYANOCOBALAMIN
     Dosage: TAB
     Route: 048

REACTIONS (9)
  - Cough [Unknown]
  - Dyspnoea [Unknown]
  - Weight increased [Unknown]
  - Cardiac failure congestive [Unknown]
  - Vaginal haemorrhage [Unknown]
  - Swelling [Unknown]
  - Abdominal pain [Unknown]
  - Haematochezia [Unknown]
  - Amnesia [Unknown]

NARRATIVE: CASE EVENT DATE: 20120202
